FAERS Safety Report 13453883 (Version 2)
Quarter: 2017Q3

REPORT INFORMATION
  Report Type: Spontaneous
  Country: US (occurrence: US)
  Receive Date: 20170418
  Receipt Date: 20170928
  Transmission Date: 20171127
  Serious: Yes (Other)
  Sender: FDA-Public Use
  Company Number: US-LANNETT COMPANY, INC.-US-2017LAN000699

PATIENT

DRUGS (2)
  1. FLUPHENAZINE HYDROCHLORIDE (10MG) [Suspect]
     Active Substance: FLUPHENAZINE HYDROCHLORIDE
     Indication: NIGHTMARE
     Dosage: UNK
  2. FLUPHENAZINE HYDROCHLORIDE (10MG) [Suspect]
     Active Substance: FLUPHENAZINE HYDROCHLORIDE
     Indication: DEPRESSION

REACTIONS (5)
  - Tongue disorder [Unknown]
  - Dry mouth [Unknown]
  - Myocardial infarction [Unknown]
  - Tooth loss [Unknown]
  - Jaw disorder [Unknown]
